FAERS Safety Report 4995386-3 (Version None)
Quarter: 2006Q2

REPORT INFORMATION
  Report Type: 
  Country: None (occurrence: None)
  Receive Date: 20060503
  Receipt Date: 20060420
  Transmission Date: 20061013
  Serious: Yes (Death)
  Sender: FDA-Public Use
  Company Number: 2006S1001877

PATIENT
  Age: 75 Year
  Sex: Male

DRUGS (8)
  1. CLOZAPINE [Suspect]
     Indication: DEMENTIA
     Dosage: 25 MG;QD;ORAL
     Route: 048
     Dates: start: 20060118, end: 20060221
  2. MORPHINE [Concomitant]
  3. CITALOPRAM HYDROBROMIDE [Concomitant]
  4. HYOSCYAMINE [Concomitant]
  5. CARBIDOPA AND LEVODOPA [Concomitant]
  6. PARACETAMOL [Concomitant]
  7. VITAMINS NOS [Concomitant]
  8. SALBUTAMOL [Concomitant]

REACTIONS (5)
  - DEPRESSION [None]
  - GENERAL PHYSICAL HEALTH DETERIORATION [None]
  - PAIN [None]
  - PYREXIA [None]
  - SALIVARY HYPERSECRETION [None]
